FAERS Safety Report 8186736-8 (Version None)
Quarter: 2012Q1

REPORT INFORMATION
  Report Type: 
  Country: None (occurrence: None)
  Receive Date: 20120306
  Receipt Date: 20120223
  Transmission Date: 20120608
  Serious: Yes (Other)
  Sender: FDA-Public Use
  Company Number: FR-BRISTOL-MYERS SQUIBB COMPANY-16417891

PATIENT
  Age: 75 Year
  Sex: Female

DRUGS (5)
  1. TENORMIN [Concomitant]
  2. IMOVANE [Concomitant]
  3. HYDREA [Suspect]
     Indication: ESSENTIAL THROMBOCYTHAEMIA
     Route: 048
     Dates: end: 20111201
  4. LEVOTHYROXINE SODIUM [Concomitant]
  5. SULFARLEM [Concomitant]

REACTIONS (3)
  - MYELOFIBROSIS [None]
  - IRON DEFICIENCY [None]
  - ANAEMIA [None]
